FAERS Safety Report 4360854-4 (Version None)
Quarter: 2004Q2

REPORT INFORMATION
  Report Type: 
  Country: None (occurrence: None)
  Receive Date: 20040517
  Receipt Date: 20040505
  Transmission Date: 20050107
  Serious: Yes (Hospitalization)
  Sender: FDA-Public Use
  Company Number: 2004PK00672

PATIENT
  Age: 2 Month
  Sex: Male
  Weight: 3.4 kg

DRUGS (1)
  1. CARBOSTESIN ^ASTRA^ [Suspect]
     Indication: LOCAL ANAESTHESIA
     Dosage: 0.4 ML/KG SQ
     Route: 058
     Dates: start: 20040413

REACTIONS (1)
  - ACQUIRED METHAEMOGLOBINAEMIA [None]
